FAERS Safety Report 6740059-X (Version None)
Quarter: 2010Q2

REPORT INFORMATION
  Report Type: 
  Country: None (occurrence: None)
  Receive Date: 20100525
  Receipt Date: 20100518
  Transmission Date: 20101027
  Serious: Yes (Hospitalization)
  Sender: FDA-Public Use
  Company Number: PE-PFIZER INC-2010018567

PATIENT
  Age: 67 Year
  Sex: Female
  Weight: 98.4 kg

DRUGS (16)
  1. BLINDED *IBUPROFEN [Suspect]
     Indication: OSTEOARTHRITIS
     Dosage: LOW DOSE
     Route: 048
     Dates: start: 20081111, end: 20100127
  2. NAPROXEN [Suspect]
     Indication: OSTEOARTHRITIS
     Dosage: LOW DOSE
     Route: 048
     Dates: start: 20081111, end: 20100127
  3. BLINDED *NO SUBJECT DRUG [Suspect]
     Indication: OSTEOARTHRITIS
     Dosage: LOW DOSE
     Route: 048
     Dates: start: 20081111, end: 20100127
  4. BLINDED *PLACEBO [Suspect]
     Indication: OSTEOARTHRITIS
     Dosage: LOW DOSE
     Route: 048
     Dates: start: 20081111, end: 20100127
  5. BLINDED CELECOXIB [Suspect]
     Indication: OSTEOARTHRITIS
     Dosage: LOW DOSE
     Route: 048
     Dates: start: 20081111, end: 20100127
  6. BLINDED IBUPROFEN [Suspect]
     Dosage: LOW DOSE
     Route: 048
     Dates: start: 20081111, end: 20100127
  7. NAPROXEN [Suspect]
     Dosage: LOW DOSE
     Route: 048
     Dates: start: 20081111, end: 20100127
  8. BLINDED *IBUPROFEN [Suspect]
     Indication: RHEUMATOID ARTHRITIS
  9. NAPROXEN [Suspect]
     Indication: RHEUMATOID ARTHRITIS
  10. BLINDED *NO SUBJECT DRUG [Suspect]
     Indication: RHEUMATOID ARTHRITIS
  11. BLINDED *PLACEBO [Suspect]
     Indication: RHEUMATOID ARTHRITIS
  12. BLINDED CELECOXIB [Suspect]
     Indication: RHEUMATOID ARTHRITIS
  13. BLINDED IBUPROFEN [Suspect]
  14. NAPROXEN [Suspect]
  15. NEXIUM [Concomitant]
     Indication: GASTRITIS PROPHYLAXIS
     Dosage: 20 MG, 1X/DAY
     Route: 048
     Dates: start: 20081111, end: 20100127
  16. LOSARTAN [Concomitant]
     Indication: HYPERTENSION
     Dosage: 100 MG, 2X/DAY
     Route: 048
     Dates: start: 20090325

REACTIONS (1)
  - ARRHYTHMIA [None]
